FAERS Safety Report 4577815-2 (Version None)
Quarter: 2005Q1

REPORT INFORMATION
  Report Type: 
  Country: None (occurrence: None)
  Receive Date: 20050209
  Receipt Date: 20050131
  Transmission Date: 20050727
  Serious: Yes (Hospitalization)
  Sender: FDA-Public Use
  Company Number: WAES 0401USA02151

PATIENT
  Age: 81 Year
  Sex: Male

DRUGS (1)
  1. DECADRON [Suspect]
     Dosage: UNK/PO
     Route: 048

REACTIONS (5)
  - DUODENAL ULCER PERFORATION [None]
  - PERITONITIS [None]
  - POSTOPERATIVE WOUND COMPLICATION [None]
  - RESPIRATORY FAILURE [None]
  - WOUND ABSCESS [None]
